FAERS Safety Report 10286226 (Version 1)
Quarter: 2014Q3

REPORT INFORMATION
  Report Type: Spontaneous
  Country: US (occurrence: None)
  Receive Date: 20140707
  Receipt Date: 20140707
  Transmission Date: 20150326
  Serious: Yes (Other)
  Sender: FDA-Public Use
  Company Number: SYM-2014-22717

PATIENT
  Age: 6 Decade
  Sex: Female

DRUGS (9)
  1. WELLBUTRIN XL [Suspect]
     Active Substance: BUPROPION HYDROCHLORIDE
     Indication: DEPRESSION
     Route: 048
  2. MULTIVITAMINS (ERGOCALCIFEROL, ASCORBIC ACID, FOLIC ACID, THIAMINE HYDROCHLORIDE, RETINOL, RIBOFLAVIN, NICOTINAMIDE, PANTHENOL) [Concomitant]
  3. FLAXSEED (LINUM USITATISSIMUM SEED) (LINUM USITATISSIMUM SEED) [Concomitant]
  4. VITIS VINIFERA SEED (VITIS VINIFERA SEED) [Concomitant]
  5. BUPROPION HYDROCHLORIDE (TABLET) (BUPROPION HYDROCHLORIDE) [Suspect]
     Active Substance: BUPROPION HYDROCHLORIDE
     Indication: DEPRESSION
     Route: 048
     Dates: start: 200709
  6. DIFLUCAN (FLUCONAZOLE) (FLUCONAZOLE) [Concomitant]
  7. VITAMIN D (ERGOCALCIFEROL) (ERGOCALCIFEROL) [Concomitant]
  8. WELLBUTRIN SR [Suspect]
     Active Substance: BUPROPION HYDROCHLORIDE
     Indication: DEPRESSION
     Route: 048
  9. BUPROPION HYDROCHLORIDE (PROLONGED-RELEASE TABLET) (BUPROPION HYDROCHLORIDE) [Suspect]
     Active Substance: BUPROPION HYDROCHLORIDE
     Indication: DEPRESSION
     Route: 048
     Dates: start: 201402

REACTIONS (13)
  - Dizziness [None]
  - Attention deficit/hyperactivity disorder [None]
  - Panic attack [None]
  - Depressed mood [None]
  - Cardiac flutter [None]
  - Mood altered [None]
  - Headache [None]
  - Drug ineffective [None]
  - Sleep disorder [None]
  - Accidental overdose [None]
  - Dry mouth [None]
  - Unevaluable event [None]
  - Anger [None]
